FAERS Safety Report 5297470-6 (Version None)
Quarter: 2007Q2

REPORT INFORMATION
  Report Type: 
  Country: None (occurrence: None)
  Receive Date: 20070406
  Receipt Date: 20070327
  Transmission Date: 20071010
  Serious: No
  Sender: FDA-Public Use
  Company Number: 2007-153909-NL

PATIENT
  Age: 64 Year
  Sex: Male

DRUGS (1)
  1. MIRTAZAPINE [Suspect]
     Dosage: 45 MG ORAL
     Route: 048
     Dates: start: 20060503, end: 20061130

REACTIONS (1)
  - BLOOD GLUCOSE ABNORMAL [None]
